FAERS Safety Report 7652283-2 (Version None)
Quarter: 2011Q3

REPORT INFORMATION
  Report Type: 
  Country: None (occurrence: None)
  Receive Date: 20110803
  Receipt Date: 20110719
  Transmission Date: 20111222
  Serious: No
  Sender: FDA-Public Use
  Company Number: US-B.I. PHARMACEUTICALS,INC./RIDGEFIELD-2011-BP-18125BP

PATIENT
  Sex: Female

DRUGS (12)
  1. BUPROPION HCL [Concomitant]
     Indication: DEPRESSION
     Dosage: 150 MG
     Route: 048
  2. POTASSIUM CL [Concomitant]
     Dosage: 20 MEQ
     Route: 048
  3. SPIRIVA [Suspect]
     Indication: CHRONIC OBSTRUCTIVE PULMONARY DISEASE
     Dosage: 18 MCG
     Route: 055
     Dates: start: 20110619, end: 20110717
  4. FUROSEMIDE [Concomitant]
     Indication: FLUID RETENTION
     Dosage: 40 MG
     Route: 048
  5. SYMBICORT [Concomitant]
     Indication: CHRONIC OBSTRUCTIVE PULMONARY DISEASE
     Route: 055
  6. DETROL LA [Concomitant]
     Indication: BLADDER DISORDER
     Dosage: 4 MG
     Route: 048
  7. OMEPRAZOLE [Concomitant]
     Indication: DYSPEPSIA
     Dosage: 20 MG
     Route: 048
  8. TOVIAZ [Concomitant]
     Indication: BLADDER DISORDER
     Dosage: 8 MG
     Route: 048
  9. NAPROXEN [Concomitant]
     Indication: ARTHRALGIA
     Dosage: 500 MG
     Route: 048
  10. PAROXETINE HCL [Concomitant]
     Indication: DEPRESSION
     Dosage: 40 MG
     Route: 048
  11. ALENDRONATE SODIUM [Concomitant]
     Dosage: 70 MG
     Route: 048
  12. SIMVASTATIN [Concomitant]
     Indication: BLOOD CHOLESTEROL ABNORMAL
     Dosage: 20 MG
     Route: 048

REACTIONS (1)
  - ORAL DISCOMFORT [None]
